FAERS Safety Report 8585631-X (Version None)
Quarter: 2012Q3

REPORT INFORMATION
  Report Type: 
  Country: None (occurrence: None)
  Receive Date: 20120810
  Receipt Date: 20120809
  Transmission Date: 20120928
  Serious: Yes (Hospitalization, Other)
  Sender: FDA-Public Use
  Company Number: PHHY2011AU61082

PATIENT
  Sex: Female

DRUGS (3)
  1. CLOZARIL [Suspect]
     Indication: SCHIZOAFFECTIVE DISORDER
     Dosage: 400 MG, UNK
     Route: 048
     Dates: start: 19960815
  2. CLOZARIL [Suspect]
     Dosage: 800 MG, UNK
     Route: 048
  3. ZUCLOPENTHIXOL [Concomitant]

REACTIONS (9)
  - SUBSTANCE ABUSE [None]
  - MANIA [None]
  - ABNORMAL BEHAVIOUR [None]
  - URINE AMPHETAMINE POSITIVE [None]
  - ALCOHOL ABUSE [None]
  - DISINHIBITION [None]
  - PSYCHIATRIC SYMPTOM [None]
  - MALAISE [None]
  - OVERWEIGHT [None]
